FAERS Safety Report 16341075 (Version 2)
Quarter: 2019Q2

REPORT INFORMATION
  Report Type: Report from Study
  Country: US (occurrence: US)
  Receive Date: 20190522
  Receipt Date: 20190625
  Transmission Date: 20190711
  Serious: Yes (Other)
  Sender: FDA-Public Use
  Company Number: PHEH2019US021033

PATIENT
  Sex: Female

DRUGS (2)
  1. COSENTYX [Suspect]
     Active Substance: SECUKINUMAB
     Indication: PSORIATIC ARTHROPATHY
     Dosage: 300 MG, QMO
     Route: 058
  2. HERPES VIRUS VACCINE [Suspect]
     Active Substance: HERPES SIMPLEX VACCINE
     Indication: HERPES ZOSTER
     Route: 065

REACTIONS (10)
  - Vaccination complication [Unknown]
  - Headache [Unknown]
  - Fatigue [Not Recovered/Not Resolved]
  - Arthropathy [Unknown]
  - Hypoaesthesia [Unknown]
  - Paraesthesia [Unknown]
  - Product dispensing error [Unknown]
  - Blood cholesterol decreased [Unknown]
  - Therapeutic product effect incomplete [Unknown]
  - Psoriatic arthropathy [Unknown]
